FAERS Safety Report 5910201-9 (Version None)
Quarter: 2008Q4

REPORT INFORMATION
  Report Type: 
  Country: None (occurrence: None)
  Receive Date: 20081007
  Receipt Date: 20071009
  Transmission Date: 20090506
  Serious: No
  Sender: FDA-Public Use
  Company Number: US-ASTRAZENECA-2007UW23457

PATIENT
  Age: 87 Year
  Sex: Female

DRUGS (1)
  1. ARIMIDEX [Suspect]
     Indication: BREAST CANCER FEMALE
     Route: 048
     Dates: start: 20030101, end: 20070901

REACTIONS (5)
  - DIVERTICULITIS [None]
  - METASTASIS [None]
  - RED BLOOD CELL COUNT DECREASED [None]
  - TUMOUR MARKER INCREASED [None]
  - WEIGHT DECREASED [None]
